FAERS Safety Report 17050273 (Version 1)
Quarter: 2019Q4

REPORT INFORMATION
  Report Type: Other
  Country: GB (occurrence: GB)
  Receive Date: 20191119
  Receipt Date: 20191119
  Transmission Date: 20200122
  Serious: Yes (Life-Threatening)
  Sender: FDA-Public Use
  Company Number: GB-B.BRAUN MEDICAL INC.-2077016

PATIENT
  Age: 52 Year
  Sex: Female

DRUGS (7)
  1. 5% AQUEOUS POVIDONE IODINE [Concomitant]
     Route: 061
  2. MINIMS? PROXYMETACAINE HYDROCHLORIDE [Concomitant]
     Route: 050
  3. LIDOCAINE HYDROCHLORIDE AND DEXTROSE [Suspect]
     Active Substance: DEXTROSE\LIDOCAINE HYDROCHLORIDE
     Route: 050
  4. BENDROFLUMETHIAZIDE [Concomitant]
     Active Substance: BENDROFLUMETHIAZIDE
  5. LEVOBUPIVACAINE [Concomitant]
     Active Substance: LEVOBUPIVACAINE
  6. DULOXETINE. [Concomitant]
     Active Substance: DULOXETINE
  7. ATENOLOL. [Concomitant]
     Active Substance: ATENOLOL

REACTIONS (4)
  - Coma [None]
  - Tachycardia [None]
  - Respiratory arrest [None]
  - Hypertension [None]
